FAERS Safety Report 15649845 (Version 1)
Quarter: 2018Q4

REPORT INFORMATION
  Report Type: Report from Study
  Country: None (occurrence: US)
  Receive Date: 20181123
  Receipt Date: 20181123
  Transmission Date: 20190205
  Serious: Yes (Other)
  Sender: FDA-Public Use
  Company Number: US-ABBVIE-18K-163-2558236-00

PATIENT
  Sex: Male

DRUGS (1)
  1. VENCLEXTA [Suspect]
     Active Substance: VENETOCLAX
     Indication: PLASMA CELL MYELOMA
     Route: 048
     Dates: start: 201711

REACTIONS (6)
  - Upper limb fracture [Unknown]
  - Arthropathy [Unknown]
  - Blood lactate dehydrogenase decreased [Unknown]
  - Blood phosphorus increased [Unknown]
  - Blood calcium decreased [Unknown]
  - Intentional product use issue [Unknown]
